FAERS Safety Report 21087780 (Version 1)
Quarter: 2022Q3

REPORT INFORMATION
  Report Type: Spontaneous
  Country: FR (occurrence: FR)
  Receive Date: 20220715
  Receipt Date: 20220715
  Transmission Date: 20221027
  Serious: Yes (Other)
  Sender: FDA-Public Use
  Company Number: None

PATIENT
  Age: 28 Year
  Sex: Female
  Weight: 46 kg

DRUGS (3)
  1. DICLOFENAC [Suspect]
     Active Substance: DICLOFENAC
     Indication: Abdominal pain upper
     Dosage: 3 DOSAGE FORM, QD
     Route: 048
     Dates: start: 20220622, end: 20220623
  2. VOGALENE [Suspect]
     Active Substance: METOPIMAZINE
     Indication: Abdominal pain upper
     Dosage: UNK (MEDICATION NOT TAKEN)
     Route: 065
  3. AMITRIPTYLINE HYDROCHLORIDE [Concomitant]
     Active Substance: AMITRIPTYLINE HYDROCHLORIDE
     Indication: Fibromyalgia
     Dosage: UNK
     Route: 048

REACTIONS (5)
  - Renal failure [Recovering/Resolving]
  - Abdominal pain upper [Recovering/Resolving]
  - Haematuria [Recovering/Resolving]
  - Product dispensing error [Recovering/Resolving]
  - Maternal exposure during pregnancy [Unknown]

NARRATIVE: CASE EVENT DATE: 20220622
